FAERS Safety Report 19685627 (Version 1)
Quarter: 2021Q3

REPORT INFORMATION
  Report Type: Spontaneous
  Country: JP (occurrence: JP)
  Receive Date: 20210811
  Receipt Date: 20210811
  Transmission Date: 20211014
  Serious: Yes (Hospitalization, Other)
  Sender: FDA-Public Use
  Company Number: JP-SUN PHARMACEUTICAL INDUSTRIES LTD-2021R1-306871

PATIENT
  Age: 8 Decade
  Sex: Male
  Weight: 68.9 kg

DRUGS (3)
  1. IRINOTECAN 40MG [Suspect]
     Active Substance: IRINOTECAN
     Indication: RECTAL CANCER
     Dosage: UNK
     Route: 065
  2. OXALIPLATIN SUN [Suspect]
     Active Substance: OXALIPLATIN
     Indication: RECTAL CANCER
     Dosage: UNK
     Route: 065
  3. CAPECITABINE. [Suspect]
     Active Substance: CAPECITABINE
     Indication: RECTAL CANCER
     Dosage: UNK
     Route: 065

REACTIONS (7)
  - Malnutrition [Recovering/Resolving]
  - Weight decreased [Recovering/Resolving]
  - Dehydration [Recovering/Resolving]
  - Decreased appetite [Recovering/Resolving]
  - Malaise [Recovering/Resolving]
  - Bacteraemia [Recovering/Resolving]
  - Loss of personal independence in daily activities [Recovering/Resolving]
